FAERS Safety Report 5941277-0 (Version None)
Quarter: 2008Q4

REPORT INFORMATION
  Report Type: 
  Country: None (occurrence: None)
  Receive Date: 20081103
  Receipt Date: 20081103
  Transmission Date: 20090506
  Serious: No
  Sender: FDA-Public Use
  Company Number: None

PATIENT
  Sex: Female
  Weight: 75 kg

DRUGS (1)
  1. AMBIEN [Suspect]
     Indication: INSOMNIA
     Dosage: 10MG HS PRN PO
     Route: 048
     Dates: start: 20081030, end: 20081030

REACTIONS (2)
  - DISORIENTATION [None]
  - VERTIGO [None]
